FAERS Safety Report 19012114 (Version 4)
Quarter: 2021Q2

REPORT INFORMATION
  Report Type: Spontaneous
  Country: FR (occurrence: FR)
  Receive Date: 20210315
  Receipt Date: 20210518
  Transmission Date: 20210717
  Serious: Yes (Other)
  Sender: FDA-Public Use
  Company Number: FR-ASTRAZENECA-2021A127827

PATIENT
  Age: 24824 Day
  Sex: Female
  Weight: 56 kg

DRUGS (5)
  1. TENORMINE [Concomitant]
     Active Substance: ATENOLOL
     Indication: HYPERTENSION
     Dosage: 25
     Route: 065
  2. LOXEN [Concomitant]
     Indication: HYPERTENSION
     Dosage: 50 SR
     Route: 065
  3. LEVOTHYROX [Concomitant]
     Active Substance: LEVOTHYROXINE
     Indication: HYPOTHYROIDISM
     Dosage: 100
     Route: 065
  4. LYNPARZA [Suspect]
     Active Substance: OLAPARIB
     Indication: PANCREATIC CARCINOMA METASTATIC
     Dosage: 300 MG MORNING AND EVENING (600 MG DAILY)
     Route: 048
     Dates: start: 20210301, end: 20210305
  5. LYNPARZA [Suspect]
     Active Substance: OLAPARIB
     Indication: PANCREATIC CARCINOMA METASTATIC
     Route: 048
     Dates: start: 2021

REACTIONS (2)
  - Peripheral swelling [Recovered/Resolved]
  - Eczema [Recovered/Resolved]

NARRATIVE: CASE EVENT DATE: 20210305
